FAERS Safety Report 5077326-4 (Version None)
Quarter: 2006Q3

REPORT INFORMATION
  Report Type: 
  Country: None (occurrence: None)
  Receive Date: 20060810
  Receipt Date: 20060126
  Transmission Date: 20061208
  Serious: No
  Sender: FDA-Public Use
  Company Number: US-GLAXOSMITHKLINE-A0591099A

PATIENT
  Age: 49 Year
  Sex: Male

DRUGS (3)
  1. PAXIL [Suspect]
     Indication: DEPRESSION
     Dosage: 10MG PER DAY
     Route: 048
  2. ZYPREXA [Concomitant]
  3. KLONOPIN [Concomitant]

REACTIONS (1)
  - VISUAL DISTURBANCE [None]
